FAERS Safety Report 5362544-8 (Version None)
Quarter: 2007Q2

REPORT INFORMATION
  Report Type: 
  Country: None (occurrence: None)
  Receive Date: 20070619
  Receipt Date: 20070608
  Transmission Date: 20071010
  Serious: Yes (Hospitalization)
  Sender: FDA-Public Use
  Company Number: US-AVENTIS-200714335US

PATIENT
  Sex: Female

DRUGS (11)
  1. LANTUS [Suspect]
     Dates: start: 20070601
  2. LANTUS [Suspect]
     Dates: start: 20070601
  3. LANTUS [Suspect]
     Dates: start: 20070601
  4. OPTICLIK GREY [Suspect]
     Dates: start: 20070601
  5. VANCOMYCIN [Concomitant]
     Dosage: DOSE: UNK
  6. PLAVIX [Concomitant]
     Dosage: DOSE: UNK
  7. AMBIEN [Concomitant]
     Dosage: DOSE: UNK
  8. NADOLOL [Concomitant]
     Dosage: DOSE: UNK
  9. ASPIRIN [Concomitant]
  10. NOVOLOG [Concomitant]
     Dates: end: 20070101
  11. NOVOLIN 70/30 [Concomitant]
     Dates: end: 20070101

REACTIONS (6)
  - ABASIA [None]
  - BLOOD GLUCOSE INCREASED [None]
  - BLOOD POTASSIUM INCREASED [None]
  - CONDITION AGGRAVATED [None]
  - HYPOTHYROIDISM [None]
  - MUSCULAR WEAKNESS [None]
